FAERS Safety Report 9783799 (Version 2)
Quarter: 2014Q1

REPORT INFORMATION
  Report Type: Spontaneous
  Country: US (occurrence: US)
  Receive Date: 20131226
  Receipt Date: 20140123
  Transmission Date: 20141002
  Serious: No
  Sender: FDA-Public Use
  Company Number: US-PFIZER INC-2013366055

PATIENT
  Age: 53 Year
  Sex: Female
  Weight: 53.06 kg

DRUGS (7)
  1. GABAPENTIN [Suspect]
     Indication: PAIN
     Dosage: UNK
  2. GABAPENTIN [Suspect]
     Indication: INFLAMMATION
  3. GABAPENTIN [Suspect]
     Indication: ANKLE FRACTURE
  4. LYRICA [Suspect]
     Indication: PAIN
     Dosage: 50 MG, EVERY 8 HRS
     Route: 048
     Dates: start: 20131206, end: 20131209
  5. LYRICA [Suspect]
     Indication: INFLAMMATION
  6. LYRICA [Suspect]
     Indication: ANKLE FRACTURE
  7. XANAX [Concomitant]
     Indication: ANXIETY
     Dosage: 1 MG, 4X/DAY
     Route: 048

REACTIONS (10)
  - Off label use [Unknown]
  - Vision blurred [Not Recovered/Not Resolved]
  - Loss of libido [Unknown]
  - Insomnia [Unknown]
  - Amnesia [Not Recovered/Not Resolved]
  - Dizziness [Unknown]
  - Headache [Unknown]
  - Disturbance in attention [Unknown]
  - Logorrhoea [Unknown]
  - Confusional state [Unknown]
